FAERS Safety Report 10027923 (Version 1)
Quarter: 2014Q1

REPORT INFORMATION
  Report Type: Spontaneous
  Country: US (occurrence: None)
  Receive Date: 20140225
  Receipt Date: 20140225
  Transmission Date: 20141002
  Serious: Yes (Life-Threatening, Other)
  Sender: FDA-Public Use
  Company Number: 54973 AE # 1526

PATIENT
  Age: 15 Month
  Sex: Male

DRUGS (2)
  1. HYLANDS BABY TEETHING TABLETS [Suspect]
     Indication: TEETHING
     Dosage: 3 TABLETS 2X ON 1/28/14
  2. TYLENOL [Concomitant]

REACTIONS (2)
  - Convulsion [None]
  - Skin discolouration [None]
